FAERS Safety Report 7562370-5 (Version None)
Quarter: 2011Q2

REPORT INFORMATION
  Report Type: 
  Country: None (occurrence: None)
  Receive Date: 20110614
  Receipt Date: 20110601
  Transmission Date: 20111010
  Serious: Yes (Death, Other)
  Sender: FDA-Public Use
  Company Number: 2011MA006681

PATIENT
  Age: 45 Year
  Sex: Female

DRUGS (4)
  1. BACLOFEN [Concomitant]
  2. TOLTERODINE TARTRATE [Concomitant]
  3. DULOXETIME HYDROCHLORIDE [Concomitant]
  4. GABAPENTIN [Suspect]

REACTIONS (3)
  - COMPLETED SUICIDE [None]
  - TOXICITY TO VARIOUS AGENTS [None]
  - MARITAL PROBLEM [None]
